FAERS Safety Report 14979433 (Version 1)
Quarter: 2018Q2

REPORT INFORMATION
  Report Type: Spontaneous
  Country: DE (occurrence: DE)
  Receive Date: 20180606
  Receipt Date: 20180606
  Transmission Date: 20180711
  Serious: Yes (Hospitalization)
  Sender: FDA-Public Use
  Company Number: DE-PFIZER INC-2018227718

PATIENT
  Age: 61 Year
  Sex: Female

DRUGS (9)
  1. AMLODIPINE [Concomitant]
     Active Substance: AMLODIPINE BESYLATE
     Dosage: 5MG TWICE DAILY (1-0-1-0)
  2. SALBUTAMOL [Concomitant]
     Active Substance: ALBUTEROL
     Dosage: UNK UNK, AS NEEDED
  3. VALSARTAN. [Concomitant]
     Active Substance: VALSARTAN
     Dosage: 160MG TWICE DAILY (1-0-1-0)
  4. METOPROLOL. [Concomitant]
     Active Substance: METOPROLOL
     Dosage: 47.5MG TWICE DAILY (1-0-1-0)
  5. IBUPROFEN. [Suspect]
     Active Substance: IBUPROFEN
     Dosage: NK MG, NK
  6. PANTOPRAZOL [Concomitant]
     Active Substance: PANTOPRAZOLE SODIUM
     Dosage: 40 MG,  ONCE DAILY (1-0-0-0
  7. SYMBICORT [Concomitant]
     Active Substance: BUDESONIDE\FORMOTEROL FUMARATE DIHYDRATE
     Dosage: 320/90 ?G, TWICE DAILY (1-0-1-0)
  8. ASPIRIN. [Concomitant]
     Active Substance: ASPIRIN
     Dosage: 100MG ONCE DAILY (1-0-0-0)
  9. TORASEMID [Concomitant]
     Active Substance: TORSEMIDE
     Dosage: 10MG ONCE DAILY (1-0-0-0)

REACTIONS (2)
  - Hypertensive emergency [Unknown]
  - Drug administration error [Unknown]

NARRATIVE: CASE EVENT DATE: 20160921
